FAERS Safety Report 16721152 (Version 1)
Quarter: 2019Q3

REPORT INFORMATION
  Report Type: Spontaneous
  Country: FR (occurrence: FR)
  Receive Date: 20190820
  Receipt Date: 20190820
  Transmission Date: 20191005
  Serious: Yes (Other)
  Sender: FDA-Public Use
  Company Number: FR-MALLINCKRODT-T201905808

PATIENT

DRUGS (1)
  1. UVADEX [Suspect]
     Active Substance: METHOXSALEN
     Indication: LICHEN PLANUS
     Dosage: UNK (EXTRACORPOREAL)
     Route: 050

REACTIONS (3)
  - Neoplasm progression [Unknown]
  - Product use in unapproved indication [Unknown]
  - Squamous cell carcinoma [Unknown]
